FAERS Safety Report 4706270-4 (Version None)
Quarter: 2005Q2

REPORT INFORMATION
  Report Type: 
  Country: None (occurrence: None)
  Receive Date: 20050629
  Receipt Date: 20050620
  Transmission Date: 20051028
  Serious: Yes (Death)
  Sender: FDA-Public Use
  Company Number: 05H-163-0300482-00

PATIENT
  Age: 36 Year
  Sex: Female
  Weight: 83.4619 kg

DRUGS (15)
  1. PHENYTOIN SODIUM [Suspect]
     Indication: CONVULSION
     Dosage: ONCE, INTRAVENOUS
     Route: 042
     Dates: start: 20050526, end: 20050526
  2. VICODIN [Concomitant]
  3. AMLODIPINE BESYLATE [Concomitant]
  4. CARVEDILOL [Concomitant]
  5. CLONIDINE [Concomitant]
  6. FUROSEMIDE [Concomitant]
  7. GEMFIBROZIL [Concomitant]
  8. INSULIN [Concomitant]
  9. LISINOPRIL [Concomitant]
  10. METHYLDOPA [Concomitant]
  11. MORPHINE [Concomitant]
  12. PANTOPRAZOLE [Concomitant]
  13. PIROXICAM [Concomitant]
  14. POTASSIUM CHLORIDE [Concomitant]
  15. PROMETHA [Concomitant]

REACTIONS (5)
  - BRADYCARDIA [None]
  - CARDIAC ARREST [None]
  - HYPOTENSION [None]
  - LOSS OF CONSCIOUSNESS [None]
  - OFF LABEL USE [None]
